FAERS Safety Report 20968788 (Version 1)
Quarter: 2022Q2

REPORT INFORMATION
  Report Type: Spontaneous
  Country: PL (occurrence: None)
  Receive Date: 20220616
  Receipt Date: 20220616
  Transmission Date: 20220721
  Serious: Yes (Other)
  Sender: FDA-Public Use
  Company Number: 2022A215766

PATIENT
  Age: 63 Year
  Sex: Female

DRUGS (1)
  1. OSIMERTINIB [Suspect]
     Active Substance: OSIMERTINIB
     Indication: Squamous cell carcinoma
     Route: 048

REACTIONS (8)
  - Malignant neoplasm progression [Not Recovered/Not Resolved]
  - Metastases to thyroid [Unknown]
  - Metastases to liver [Unknown]
  - Metastases to adrenals [Unknown]
  - Metastases to kidney [Unknown]
  - Metastases to spine [Unknown]
  - Metastases to bone [Unknown]
  - Off label use [Unknown]
